FAERS Safety Report 6982577-5 (Version None)
Quarter: 2010Q3

REPORT INFORMATION
  Report Type: 
  Country: None (occurrence: None)
  Receive Date: 20100914
  Receipt Date: 20100302
  Transmission Date: 20110219
  Serious: No
  Sender: FDA-Public Use
  Company Number: US-PFIZER INC-2010027596

PATIENT
  Sex: Female
  Weight: 65.8 kg

DRUGS (3)
  1. LYRICA [Suspect]
     Indication: NEUROPATHY PERIPHERAL
     Dosage: 225 MG, 2X/DAY
     Route: 048
     Dates: start: 20090101, end: 20100201
  2. LYRICA [Suspect]
     Indication: FIBROMYALGIA
  3. CELEBREX [Concomitant]
     Dosage: UNK

REACTIONS (2)
  - HEADACHE [None]
  - NAUSEA [None]
